FAERS Safety Report 13775790 (Version 1)
Quarter: 2017Q3

REPORT INFORMATION
  Report Type: Spontaneous
  Country: IT (occurrence: IT)
  Receive Date: 20170720
  Receipt Date: 20170720
  Transmission Date: 20171127
  Serious: Yes (Hospitalization)
  Sender: FDA-Public Use
  Company Number: IT-PFIZER INC-1757731

PATIENT
  Age: 68 Year
  Sex: Female

DRUGS (1)
  1. CEFOTAXIME [Suspect]
     Active Substance: CEFOTAXIME SODIUM
     Indication: ARTERIOVENOUS FISTULA OPERATION
     Dosage: 1 G, FREQ: 1 DAY; INERVAL: 1
     Route: 042
     Dates: start: 20130507, end: 20130507

REACTIONS (2)
  - Atrial fibrillation [Recovering/Resolving]
  - Anaphylactic shock [Recovering/Resolving]

NARRATIVE: CASE EVENT DATE: 20130507
